FAERS Safety Report 23531100 (Version 1)
Quarter: 2024Q1

REPORT INFORMATION
  Report Type: Spontaneous
  Country: CN (occurrence: CN)
  Receive Date: 20240216
  Receipt Date: 20240216
  Transmission Date: 20240410
  Serious: Yes (Other)
  Sender: FDA-Public Use
  Company Number: CN-SUN PHARMACEUTICAL INDUSTRIES LTD-2024R1-430985

PATIENT
  Age: 37 Year
  Sex: Male
  Weight: 69 kg

DRUGS (4)
  1. MIDAZOLAM [Suspect]
     Active Substance: MIDAZOLAM
     Indication: Product used for unknown indication
     Dosage: 2 MILLIGRAM, UNK
     Route: 042
  2. PROPOFOL [Suspect]
     Active Substance: PROPOFOL
     Indication: Product used for unknown indication
     Dosage: 140 MILLIGRAM, UNK
     Route: 065
  3. VECURONIUM [Suspect]
     Active Substance: VECURONIUM BROMIDE
     Indication: Product used for unknown indication
     Dosage: 8 MILLIGRAM, UNK
     Route: 065
  4. SUFENTANIL [Suspect]
     Active Substance: SUFENTANIL
     Indication: Product used for unknown indication
     Dosage: 30 MICROGRAM, UNK
     Route: 065

REACTIONS (1)
  - Laryngeal stenosis [Recovering/Resolving]
